FAERS Safety Report 4824826-5 (Version None)
Quarter: 2005Q4

REPORT INFORMATION
  Report Type: 
  Country: None (occurrence: None)
  Receive Date: 20051012
  Receipt Date: 20050623
  Transmission Date: 20060501
  Serious: No
  Sender: FDA-Public Use
  Company Number: 2005S1000141

PATIENT
  Age: 40 Year
  Sex: 0
  Weight: 78 kg

DRUGS (9)
  1. CUBICIN [Suspect]
     Indication: STAPHYLOCOCCAL BACTERAEMIA
     Dosage: 350 MG; Q24H; IV
     Route: 042
     Dates: start: 20050621, end: 20050701
  2. ACYCLOVIR [Suspect]
     Dates: start: 20050620, end: 20050622
  3. OXYCODONE [Concomitant]
  4. FENTANYL [Concomitant]
  5. LANSOPRAZOLE [Concomitant]
  6. DOCUSATE [Concomitant]
  7. WARFARIN [Concomitant]
  8. FUROSEMIDE [Concomitant]
  9. ACYCLOVIR [Concomitant]

REACTIONS (1)
  - RENAL FAILURE [None]
